FAERS Safety Report 7203641-1 (Version None)
Quarter: 2010Q4

REPORT INFORMATION
  Report Type: 
  Country: None (occurrence: None)
  Receive Date: 20101228
  Receipt Date: 20101228
  Transmission Date: 20110411
  Serious: Yes (Life-Threatening, Hospitalization)
  Sender: FDA-Public Use
  Company Number: None

PATIENT
  Age: 69 Year
  Sex: Male
  Weight: 72.1219 kg

DRUGS (1)
  1. BIAXIN [Suspect]
     Indication: BRONCHITIS
     Dosage: ONE TABLET TWICE DAILY PO
     Route: 048
     Dates: start: 20101204, end: 20101214

REACTIONS (2)
  - DIARRHOEA HAEMORRHAGIC [None]
  - LOSS OF CONSCIOUSNESS [None]
